FAERS Safety Report 9541601 (Version 2)
Quarter: 2013Q4

REPORT INFORMATION
  Report Type: Spontaneous
  Country: AR (occurrence: AR)
  Receive Date: 20130923
  Receipt Date: 20131206
  Transmission Date: 20140711
  Serious: Yes (Other)
  Sender: FDA-Public Use
  Company Number: AR-AMGEN-ARGSP2013066271

PATIENT
  Age: 70 Year
  Sex: Female

DRUGS (6)
  1. ENBREL [Suspect]
     Indication: RHEUMATOID ARTHRITIS
     Dosage: 50 MG, WEEKLY
     Route: 065
     Dates: start: 20091111
  2. ENBREL [Suspect]
     Dosage: 25 MG, WEEKLY
     Route: 065
  3. AZACORTID [Concomitant]
     Dosage: 6 MG, 1X/DAY
  4. CALCIUM [Concomitant]
     Dosage: 1500 MG, 1X/DAY
  5. POLIRREUMIN [Concomitant]
     Dosage: UNK
  6. ALPLAX [Concomitant]
     Dosage: 1 MG, 1X/DAY

REACTIONS (6)
  - Ear disorder [Recovered/Resolved]
  - Arthritis [Not Recovered/Not Resolved]
  - Stress [Recovered/Resolved]
  - Fall [Recovered/Resolved]
  - Red blood cell count decreased [Recovered/Resolved]
  - Bronchitis [Recovered/Resolved]
